FAERS Safety Report 15007262 (Version 1)
Quarter: 2018Q2

REPORT INFORMATION
  Report Type: Report from Study
  Country: US (occurrence: US)
  Receive Date: 20180613
  Receipt Date: 20180613
  Transmission Date: 20180711
  Serious: Yes (Other)
  Sender: FDA-Public Use
  Company Number: US-BAYER-2018-095343

PATIENT
  Age: 67 Year
  Sex: Male

DRUGS (1)
  1. NEXAVAR [Suspect]
     Active Substance: SORAFENIB
     Indication: HEPATOCELLULAR CARCINOMA
     Dosage: 200 MG, BID
     Route: 048
     Dates: start: 20180508, end: 20180524

REACTIONS (9)
  - Gangrene [None]
  - Skin discolouration [None]
  - Impaired healing [Recovering/Resolving]
  - Arthralgia [None]
  - Fatigue [Not Recovered/Not Resolved]
  - Disturbance in attention [None]
  - Burning sensation [None]
  - Nausea [Recovering/Resolving]
  - Off label use [None]

NARRATIVE: CASE EVENT DATE: 2018
